FAERS Safety Report 6602272-1 (Version None)
Quarter: 2010Q1

REPORT INFORMATION
  Report Type: 
  Country: None (occurrence: None)
  Receive Date: 20100225
  Receipt Date: 20100218
  Transmission Date: 20100710
  Serious: No
  Sender: FDA-Public Use
  Company Number: GB-B.I. PHARMACEUTICALS,INC./RIDGEFIELD-2010-UK-00039UK

PATIENT
  Sex: Female

DRUGS (3)
  1. CATAPRES [Suspect]
     Indication: MENOPAUSAL SYMPTOMS
     Dosage: 75 MCG
     Dates: start: 20040501, end: 20100101
  2. ACETAMINOPHEN AND CODEINE PHOSPHATE [Concomitant]
     Indication: FIBROMYALGIA
     Dosage: 30/500 X 2 QDS
     Route: 048
     Dates: start: 20060401
  3. LIQUIFILM TEARS [Concomitant]
     Indication: DRY EYE
     Dosage: 1 ANZ
     Route: 061

REACTIONS (3)
  - ABDOMINAL PAIN UPPER [None]
  - CONNECTIVE TISSUE DISORDER [None]
  - WITHDRAWAL SYNDROME [None]
